FAERS Safety Report 8083325-0 (Version None)
Quarter: 2012Q1

REPORT INFORMATION
  Report Type: 
  Country: None (occurrence: None)
  Receive Date: 20120127
  Receipt Date: 20110131
  Transmission Date: 20120608
  Serious: No
  Sender: FDA-Public Use
  Company Number: US-ABBOTT-11P-163-0702707-00

PATIENT
  Sex: Female

DRUGS (1)
  1. HUMIRA [Suspect]
     Indication: RHEUMATOID ARTHRITIS
     Dates: start: 20110128

REACTIONS (5)
  - DEVICE MALFUNCTION [None]
  - VOMITING [None]
  - DYSGEUSIA [None]
  - HEADACHE [None]
  - HAEMOPTYSIS [None]
